FAERS Safety Report 14176174 (Version 2)
Quarter: 2017Q4

REPORT INFORMATION
  Report Type: Spontaneous
  Country: FR (occurrence: FR)
  Receive Date: 20171109
  Receipt Date: 20171110
  Transmission Date: 20180321
  Serious: Yes (Other)
  Sender: FDA-Public Use
  Company Number: FR-ACORDA-ACO_143931_2017

PATIENT
  Age: 0 Year
  Sex: Male
  Weight: 4 kg

DRUGS (2)
  1. QUTENZA [Suspect]
     Active Substance: CAPSAICIN
     Indication: PRODUCT USED FOR UNKNOWN INDICATION
     Dosage: UNK
     Route: 064
     Dates: start: 20161205, end: 20161205
  2. QUTENZA [Suspect]
     Active Substance: CAPSAICIN
     Dosage: UNK
     Route: 064

REACTIONS (2)
  - Neonatal respiratory distress syndrome [Unknown]
  - Foetal exposure during pregnancy [Recovered/Resolved]

NARRATIVE: CASE EVENT DATE: 20161205
